FAERS Safety Report 12544766 (Version 2)
Quarter: 2016Q3

REPORT INFORMATION
  Report Type: Report from Study
  Country: PL (occurrence: PL)
  Receive Date: 20160711
  Receipt Date: 20160719
  Transmission Date: 20161109
  Serious: Yes (Hospitalization)
  Sender: FDA-Public Use
  Company Number: PL-BIOGEN-2016BI00261143

PATIENT
  Age: 33 Year
  Sex: Male
  Weight: 85 kg

DRUGS (5)
  1. POLPRIL [Concomitant]
     Active Substance: RAMIPRIL
     Indication: HYPERTONIA
     Route: 048
     Dates: start: 20150501
  2. BG00012 [Suspect]
     Active Substance: DIMETHYL FUMARATE
     Indication: MULTIPLE SCLEROSIS
     Route: 048
     Dates: start: 20160309
  3. EUTHYROX [Concomitant]
     Active Substance: LEVOTHYROXINE SODIUM
     Indication: BASEDOW^S DISEASE
     Route: 048
     Dates: start: 20150122
  4. BG00012 [Suspect]
     Active Substance: DIMETHYL FUMARATE
     Route: 048
  5. ELICEA [Concomitant]
     Active Substance: ESCITALOPRAM OXALATE
     Indication: PROPHYLAXIS
     Route: 048
     Dates: start: 20150630

REACTIONS (1)
  - Multiple sclerosis relapse [Not Recovered/Not Resolved]

NARRATIVE: CASE EVENT DATE: 20160702
